FAERS Safety Report 11348571 (Version 1)
Quarter: 2015Q3

REPORT INFORMATION
  Report Type: Report from Study
  Country: FR (occurrence: FR)
  Receive Date: 20150806
  Receipt Date: 20150806
  Transmission Date: 20151125
  Serious: Yes (Death, Hospitalization, Other)
  Sender: FDA-Public Use
  Company Number: FR-BRISTOL-MYERS SQUIBB COMPANY-BMS-2015-050115

PATIENT
  Age: 56 Year
  Sex: Female

DRUGS (10)
  1. PROGRAF [Concomitant]
     Active Substance: TACROLIMUS\TACROLIMUS ANHYDROUS
     Indication: IMMUNOSUPPRESSION
     Dosage: 0.5 MG, BID
     Route: 065
     Dates: start: 1991
  2. CELLCEPT [Concomitant]
     Active Substance: MYCOPHENOLATE MOFETIL\MYCOPHENOLATE MOFETIL HYDROCHLORIDE
     Indication: IMMUNOSUPPRESSION
     Dosage: 1000 MG, BID
     Route: 065
     Dates: start: 1991
  3. VIREAD [Concomitant]
     Active Substance: TENOFOVIR DISOPROXIL FUMARATE
     Indication: HEPATITIS B VIRUS TEST
     Dosage: 245 MG, QD
     Route: 065
     Dates: start: 20150527
  4. HYDROCORTISONE. [Concomitant]
     Active Substance: HYDROCORTISONE
     Indication: PRODUCT USED FOR UNKNOWN INDICATION
     Dosage: 10 MG, TID
     Route: 065
  5. ENTECAVIR. [Suspect]
     Active Substance: ENTECAVIR
     Indication: HEPATITIS B
     Dosage: 0.5 MG, QD
     Route: 065
     Dates: start: 20150527
  6. KEPPRA [Concomitant]
     Active Substance: LEVETIRACETAM
     Indication: PRODUCT USED FOR UNKNOWN INDICATION
     Dosage: 250 MG, QD
     Route: 065
  7. RIFAXIMINE [Concomitant]
     Indication: HEPATIC ENCEPHALOPATHY
     Dosage: 500 MG, BID
     Route: 065
     Dates: start: 20150527
  8. INSULIN [Concomitant]
     Active Substance: INSULIN NOS
     Indication: DIABETES MELLITUS
     Dosage: UNK, QD
     Route: 042
     Dates: start: 2014
  9. POTASSIUM RICHARD [Concomitant]
     Active Substance: POTASSIUM CHLORIDE\POTASSIUM GLYCEROPHOSPHATE ANHYDROUS
     Indication: PRODUCT USED FOR UNKNOWN INDICATION
     Dosage: UNK, QD
     Route: 065
     Dates: start: 20150527
  10. URBANYL [Concomitant]
     Active Substance: CLOBAZAM
     Indication: PRODUCT USED FOR UNKNOWN INDICATION
     Dosage: 5 MG, QD
     Route: 065

REACTIONS (6)
  - Hepatic enzyme abnormal [Fatal]
  - Shock [Fatal]
  - Encephalopathy [Fatal]
  - Decreased immune responsiveness [Fatal]
  - Lung disorder [Fatal]
  - Status epilepticus [Fatal]

NARRATIVE: CASE EVENT DATE: 20150606
